FAERS Safety Report 15264168 (Version 1)
Quarter: 2018Q3

REPORT INFORMATION
  Report Type: Spontaneous
  Country: US (occurrence: US)
  Receive Date: 20180721
  Receipt Date: 20180721
  Transmission Date: 20181010
  Serious: No
  Sender: FDA-Public Use
  Company Number: None

PATIENT
  Age: 67 Year
  Sex: Female
  Weight: 76.05 kg

DRUGS (6)
  1. WHECHOL [Concomitant]
  2. QVAR [Suspect]
     Active Substance: BECLOMETHASONE DIPROPIONATE
     Indication: ASTHMA
     Dosage: ?          QUANTITY:2 PUFF(S);?
     Route: 055
     Dates: start: 20170101, end: 20180430
  3. NORVASC [Concomitant]
     Active Substance: AMLODIPINE BESYLATE
  4. SLOW FE IRON [Concomitant]
  5. LEVALBUTEROL TARTRATE HFA INHALATION AEROSOL [Concomitant]
     Active Substance: LEVALBUTEROL TARTRATE
  6. VITAMIN D [Concomitant]
     Active Substance: CHOLECALCIFEROL

REACTIONS (2)
  - Pruritus [None]
  - Dry skin [None]

NARRATIVE: CASE EVENT DATE: 20170801
